FAERS Safety Report 6399495-6 (Version None)
Quarter: 2009Q4

REPORT INFORMATION
  Report Type: 
  Country: None (occurrence: None)
  Receive Date: 20091014
  Receipt Date: 20091007
  Transmission Date: 20100525
  Serious: Yes (Other)
  Sender: FDA-Public Use
  Company Number: DE-JNJFOC-20090700929

PATIENT
  Sex: Male
  Weight: 58.9 kg

DRUGS (1)
  1. CONCERTA [Suspect]
     Indication: ATTENTION DEFICIT/HYPERACTIVITY DISORDER
     Route: 048
     Dates: start: 20090627, end: 20090629

REACTIONS (7)
  - COLD SWEAT [None]
  - HYPERSENSITIVITY [None]
  - HYPERTENSION [None]
  - OFF LABEL USE [None]
  - SYNCOPE [None]
  - TACHYCARDIA [None]
  - TACHYPNOEA [None]
